FAERS Safety Report 15536355 (Version 2)
Quarter: 2018Q4

REPORT INFORMATION
  Report Type: Spontaneous
  Country: JP (occurrence: JP)
  Receive Date: 20181022
  Receipt Date: 20181105
  Transmission Date: 20190205
  Serious: Yes (Other)
  Sender: FDA-Public Use
  Company Number: JP-SA-2018SA286515

PATIENT
  Age: 72 Year
  Sex: Male

DRUGS (1)
  1. BCG FOR IMMUNOTHERAPY [Suspect]
     Active Substance: BACILLUS CALMETTE-GUERIN ANTIGEN, UNSPECIFIED SUBSTRAIN
     Indication: BLADDER CANCER
     Dosage: 40 MG/WEEK
     Route: 043

REACTIONS (11)
  - Urethritis [Unknown]
  - Dysuria [Unknown]
  - Tuberculosis bladder [Unknown]
  - Cystitis [Unknown]
  - Urinary bladder atrophy [Unknown]
  - Conjunctivitis [Unknown]
  - Arthritis [Unknown]
  - Haematuria [Unknown]
  - Reiter^s syndrome [Unknown]
  - Joint swelling [Unknown]
  - Urethral stenosis [Unknown]
